FAERS Safety Report 4309631-0 (Version None)
Quarter: 2004Q1

REPORT INFORMATION
  Report Type: 
  Country: None (occurrence: None)
  Receive Date: 20040302
  Receipt Date: 20040220
  Transmission Date: 20041129
  Serious: Yes (Other)
  Sender: FDA-Public Use
  Company Number: US-JNJFOC-20040204989

PATIENT
  Age: 55 Year
  Sex: Female
  Weight: 60.782 kg

DRUGS (7)
  1. REMICADE [Suspect]
     Indication: RHEUMATOID ARTHRITIS
     Dosage: INTRAVENOUS
     Route: 042
     Dates: start: 20010801, end: 20010801
  2. ARAVA [Concomitant]
  3. METHOTREXATE [Concomitant]
  4. PREDNISONE [Concomitant]
  5. RANITIDINE [Concomitant]
  6. LEUCOVORIN CALCIUM [Concomitant]
  7. FOSAMAX [Concomitant]

REACTIONS (1)
  - SQUAMOUS CELL CARCINOMA [None]
